FAERS Safety Report 4914298-4 (Version None)
Quarter: 2006Q1

REPORT INFORMATION
  Report Type: 
  Country: None (occurrence: None)
  Receive Date: 20060216
  Receipt Date: 20060126
  Transmission Date: 20060701
  Serious: Yes (Hospitalization)
  Sender: FDA-Public Use
  Company Number: JP-ABBOTT-06P-087-0323534-00

PATIENT
  Age: 19 Year
  Sex: Female
  Weight: 44 kg

DRUGS (2)
  1. VALPROATE SODIUM [Suspect]
     Indication: SUICIDE ATTEMPT
     Route: 048
  2. VALPROATE SODIUM [Suspect]
     Indication: GRAND MAL CONVULSION
     Route: 048

REACTIONS (6)
  - COMA [None]
  - DRUG TOXICITY [None]
  - INTENTIONAL DRUG MISUSE [None]
  - LACTIC ACIDOSIS [None]
  - OVERDOSE [None]
  - SUICIDE ATTEMPT [None]
